FAERS Safety Report 9727202 (Version 1)
Quarter: 2013Q4

REPORT INFORMATION
  Report Type: Spontaneous
  Country: US (occurrence: US)
  Receive Date: 20131203
  Receipt Date: 20131203
  Transmission Date: 20140711
  Serious: Yes (Other)
  Sender: FDA-Public Use
  Company Number: US-TEVA-447412USA

PATIENT
  Age: 33 Year
  Sex: Male

DRUGS (1)
  1. NICOTINIC ACID [Suspect]
     Dates: start: 20131122, end: 201311

REACTIONS (4)
  - Chest pain [Unknown]
  - Flatulence [Unknown]
  - Heart rate increased [Unknown]
  - Dyspnoea [Unknown]
